FAERS Safety Report 9381812 (Version 1)
Quarter: 2013Q3

REPORT INFORMATION
  Report Type: Spontaneous
  Country: CN (occurrence: CN)
  Receive Date: 20130703
  Receipt Date: 20130703
  Transmission Date: 20140515
  Serious: Yes (Other)
  Sender: FDA-Public Use
  Company Number: CN-JHP PHARMACEUTICALS, LLC-JHP201300430

PATIENT
  Sex: 0

DRUGS (1)
  1. KETALAR [Suspect]
     Indication: DRUG ABUSE

REACTIONS (3)
  - Ureteric obstruction [Unknown]
  - Renal impairment [Unknown]
  - Lower urinary tract symptoms [Unknown]
